FAERS Safety Report 6749108-6 (Version None)
Quarter: 2010Q2

REPORT INFORMATION
  Report Type: 
  Country: None (occurrence: None)
  Receive Date: 20100601
  Receipt Date: 20100524
  Transmission Date: 20101027
  Serious: Yes (Life-Threatening)
  Sender: FDA-Public Use
  Company Number: JP-BAYER-200911782BYL

PATIENT
  Age: 81 Year
  Sex: Male
  Weight: 41 kg

DRUGS (2)
  1. NEXAVAR [Suspect]
     Indication: RENAL CELL CARCINOMA
     Dosage: TOTAL DAILY DOSE: 800 MG  UNIT DOSE: 200 MG
     Route: 048
     Dates: start: 20081128, end: 20081215
  2. NEO-MINOPHAGEN C [Concomitant]
     Route: 042
     Dates: start: 20081205, end: 20081219

REACTIONS (1)
  - STEVENS-JOHNSON SYNDROME [None]
